FAERS Safety Report 14574307 (Version 1)
Quarter: 2018Q1

REPORT INFORMATION
  Report Type: Report from Study
  Country: CO (occurrence: CO)
  Receive Date: 20180226
  Receipt Date: 20180226
  Transmission Date: 20180509
  Serious: Yes (Hospitalization, Other)
  Sender: FDA-Public Use
  Company Number: CO-ALEXION PHARMACEUTICALS INC.-A201801967

PATIENT
  Age: 10 Month
  Sex: Female
  Weight: 8 kg

DRUGS (1)
  1. SOLIRIS [Suspect]
     Active Substance: ECULIZUMAB
     Indication: ATYPICAL HAEMOLYTIC URAEMIC SYNDROME
     Dosage: 300 MG, EVERY 21 DAYS
     Route: 042
     Dates: start: 20180119

REACTIONS (3)
  - Candida infection [Not Recovered/Not Resolved]
  - Peritonitis [Not Recovered/Not Resolved]
  - Pseudomonas infection [Not Recovered/Not Resolved]

NARRATIVE: CASE EVENT DATE: 20180215
